FAERS Safety Report 11232322 (Version 2)
Quarter: 2015Q3

REPORT INFORMATION
  Report Type: Spontaneous
  Country: US (occurrence: US)
  Receive Date: 20150701
  Receipt Date: 20150806
  Transmission Date: 20151125
  Serious: No
  Sender: FDA-Public Use
  Company Number: US-ASTRAZENECA-2015SE61039

PATIENT
  Sex: Female
  Weight: 40.8 kg

DRUGS (6)
  1. PROAIR HFA [Concomitant]
     Active Substance: ALBUTEROL SULFATE
     Route: 055
  2. SYMBICORT [Suspect]
     Active Substance: BUDESONIDE\FORMOTEROL FUMARATE DIHYDRATE
     Indication: BRONCHITIS CHRONIC
     Dosage: 160 / 4.5 MCG, 2 PUFFS, TWO TIMES A DAY
     Route: 055
     Dates: start: 2012
  3. SYMBICORT [Suspect]
     Active Substance: BUDESONIDE\FORMOTEROL FUMARATE DIHYDRATE
     Indication: CHRONIC OBSTRUCTIVE PULMONARY DISEASE
     Dosage: 160 / 4.5 MCG, 2 PUFFS, TWO TIMES A DAY
     Route: 055
     Dates: start: 20150616
  4. SPIRIVA [Concomitant]
     Active Substance: TIOTROPIUM BROMIDE MONOHYDRATE
     Route: 055
  5. SYMBICORT [Suspect]
     Active Substance: BUDESONIDE\FORMOTEROL FUMARATE DIHYDRATE
     Indication: CHRONIC OBSTRUCTIVE PULMONARY DISEASE
     Dosage: 160 / 4.5 MCG, 2 PUFFS, TWO TIMES A DAY
     Route: 055
     Dates: start: 2012
  6. SYMBICORT [Suspect]
     Active Substance: BUDESONIDE\FORMOTEROL FUMARATE DIHYDRATE
     Indication: BRONCHITIS CHRONIC
     Dosage: 160 / 4.5 MCG, 2 PUFFS, TWO TIMES A DAY
     Route: 055
     Dates: start: 20150616

REACTIONS (7)
  - Drug dose omission [Not Recovered/Not Resolved]
  - Off label use [Unknown]
  - Productive cough [Unknown]
  - Intentional product misuse [Unknown]
  - Cough [Unknown]
  - Malaise [Unknown]
  - Product quality issue [Unknown]
